FAERS Safety Report 5039481-1 (Version None)
Quarter: 2006Q2

REPORT INFORMATION
  Report Type: 
  Country: None (occurrence: None)
  Receive Date: 20060629
  Receipt Date: 20060626
  Transmission Date: 20061013
  Serious: Yes (Hospitalization)
  Sender: FDA-Public Use
  Company Number: US-JNJFOC-20060500877

PATIENT
  Sex: Female

DRUGS (11)
  1. TYLENOL (CAPLET) [Suspect]
     Route: 048
  2. TYLENOL (CAPLET) [Suspect]
     Indication: ARTHRITIS
     Route: 048
  3. EXTRA STRENGTH TYLENOL [Suspect]
     Route: 048
  4. EXTRA STRENGTH TYLENOL [Suspect]
     Indication: ARTHRITIS
     Route: 048
  5. PROPOXYPHENE HYDROCHLORIDE [Concomitant]
     Indication: ARTHRITIS
  6. PREDNISONE [Concomitant]
     Indication: ARTHRITIS
     Route: 048
  7. METHOTREXATE [Concomitant]
     Indication: ARTHRITIS
  8. REMICADE [Concomitant]
     Indication: ARTHRITIS
  9. DARVOCET [Concomitant]
  10. ACIPHEX [Concomitant]
  11. ARIMIDEX [Concomitant]

REACTIONS (1)
  - CEREBROVASCULAR ACCIDENT [None]
